FAERS Safety Report 22587733 (Version 4)
Quarter: 2023Q4

REPORT INFORMATION
  Report Type: Spontaneous
  Country: PT (occurrence: PT)
  Receive Date: 20230612
  Receipt Date: 20231020
  Transmission Date: 20240109
  Serious: Yes (Other)
  Sender: FDA-Public Use
  Company Number: PT-AUROBINDO-AUR-APL-2023-041455

PATIENT
  Age: 69 Year
  Sex: Male

DRUGS (1)
  1. LENALIDOMIDE [Suspect]
     Active Substance: LENALIDOMIDE
     Indication: Transplant
     Dosage: UNK
     Route: 065
     Dates: start: 2018

REACTIONS (1)
  - Haemophilus infection [Recovered/Resolved]
